FAERS Safety Report 8495265-3 (Version None)
Quarter: 2012Q3

REPORT INFORMATION
  Report Type: 
  Country: None (occurrence: None)
  Receive Date: 20120709
  Receipt Date: 20120702
  Transmission Date: 20120928
  Serious: Yes (Hospitalization, Disabling, Other)
  Sender: FDA-Public Use
  Company Number: US-MERCK SHARP & DOHME-1111USA02613

PATIENT

DRUGS (4)
  1. ACTONEL [Suspect]
     Indication: OSTEOPENIA
  2. FOSAMAX [Suspect]
     Indication: OSTEOPENIA
     Dosage: 10 MG, UNK
     Route: 048
     Dates: start: 20000705, end: 20010905
  3. ACTONEL [Suspect]
     Indication: OSTEOPOROSIS
     Dosage: 35 MG, UNK
     Route: 048
     Dates: start: 20061101, end: 20090101
  4. FOSAMAX [Suspect]
     Indication: OSTEOPOROSIS
     Dosage: 70 MG, UNK
     Route: 048
     Dates: start: 19980101, end: 20061029

REACTIONS (36)
  - OTITIS EXTERNA [None]
  - INFECTED DERMAL CYST [None]
  - DEVICE FAILURE [None]
  - IMPAIRED HEALING [None]
  - LOCALISED INFECTION [None]
  - ORAL INFECTION [None]
  - DERMAL CYST [None]
  - LARYNGITIS [None]
  - OSTEONECROSIS OF JAW [None]
  - DENTAL FISTULA [None]
  - OSTEOARTHRITIS [None]
  - MASS [None]
  - DEVICE BREAKAGE [None]
  - TOOTH DISORDER [None]
  - ALVEOLAR OSTEITIS [None]
  - PARAESTHESIA [None]
  - VITAMIN B12 DEFICIENCY [None]
  - EXOSTOSIS [None]
  - SCARLET FEVER [None]
  - TYMPANIC MEMBRANE PERFORATION [None]
  - MUSCLE STRAIN [None]
  - BUNION [None]
  - URINARY TRACT INFECTION [None]
  - EXPOSED BONE IN JAW [None]
  - DEVICE RELATED INFECTION [None]
  - CYST [None]
  - UPPER RESPIRATORY TRACT INFECTION [None]
  - JOINT EFFUSION [None]
  - RENAL FAILURE CHRONIC [None]
  - TOOTH FRACTURE [None]
  - SYNOVIAL CYST [None]
  - SINUSITIS [None]
  - WEIGHT DECREASED [None]
  - SENSITIVITY OF TEETH [None]
  - DENTAL CARIES [None]
  - ARTHROPOD BITE [None]
